FAERS Safety Report 6621457-1 (Version None)
Quarter: 2010Q1

REPORT INFORMATION
  Report Type: 
  Country: None (occurrence: None)
  Receive Date: 20100309
  Receipt Date: 20100216
  Transmission Date: 20100710
  Serious: No
  Sender: FDA-Public Use
  Company Number: US-BIOGENIDEC-2010BI005167

PATIENT
  Age: 60 Year
  Sex: Female

DRUGS (4)
  1. AVONEX [Suspect]
     Indication: MULTIPLE SCLEROSIS
     Route: 030
     Dates: start: 20091027, end: 20100101
  2. ELAVIL [Concomitant]
     Indication: BURNING SENSATION
  3. ELAVIL [Concomitant]
     Indication: PAIN IN EXTREMITY
  4. BLOOD PRESSURE MEDICATION (NOS) [Concomitant]
     Indication: HYPERTENSION

REACTIONS (7)
  - BALANCE DISORDER [None]
  - BLOOD PRESSURE FLUCTUATION [None]
  - DEPRESSION [None]
  - FALL [None]
  - FEAR OF FALLING [None]
  - FEELING ABNORMAL [None]
  - HEADACHE [None]
